FAERS Safety Report 9271678 (Version 1)
Quarter: 2013Q2

REPORT INFORMATION
  Report Type: Spontaneous
  Country: US (occurrence: US)
  Receive Date: 20130506
  Receipt Date: 20130506
  Transmission Date: 20140414
  Serious: Yes (Death)
  Sender: FDA-Public Use
  Company Number: US-COVIDIEN/TYCO HEALTHCARE/MALLINCKRODT-T201300802

PATIENT
  Age: 51 Year
  Sex: Female
  Weight: 70.75 kg

DRUGS (3)
  1. HYDROCODONE/ACETAMINOPHEN [Suspect]
     Indication: GALLBLADDER PAIN
     Dosage: 1-2 TABS EVERY 6 HOURS
     Dates: start: 20130130, end: 20130204
  2. HYDROCODONE/ACETAMINOPHEN [Suspect]
     Indication: GALLBLADDER PAIN
     Dosage: 1-2 TABS EVERY 6 HOURS
     Dates: start: 20130204
  3. ASPIRIN [Concomitant]
     Dosage: 325 MG, UNK

REACTIONS (3)
  - Rash [Not Recovered/Not Resolved]
  - Drug effect decreased [Not Recovered/Not Resolved]
  - Dysgeusia [Recovered/Resolved]
